FAERS Safety Report 25597182 (Version 2)
Quarter: 2025Q3

REPORT INFORMATION
  Report Type: Spontaneous
  Country: US (occurrence: US)
  Receive Date: 20250723
  Receipt Date: 20250902
  Transmission Date: 20251021
  Serious: Yes (Other)
  Sender: MYLAN
  Company Number: US-MYLANLABS-2025M1059742

PATIENT
  Age: 77 Year
  Sex: Female

DRUGS (14)
  1. CARDURA [Suspect]
     Active Substance: DOXAZOSIN MESYLATE
     Indication: Product used for unknown indication
  2. DOXAZOSIN MESYLATE [Suspect]
     Active Substance: DOXAZOSIN MESYLATE
     Indication: Product used for unknown indication
  3. ORENITRAM [Suspect]
     Active Substance: TREPROSTINIL
     Indication: Pulmonary arterial hypertension
     Dosage: 0.125 MILLIGRAM, BID (TWICE DAILY)
     Dates: start: 20250612
  4. ORENITRAM [Suspect]
     Active Substance: TREPROSTINIL
     Dosage: 0.125 MILLIGRAM, TID (3 IN 1 DAY)
     Dates: start: 202505, end: 202505
  5. ORENITRAM [Suspect]
     Active Substance: TREPROSTINIL
     Dosage: 0.125 MILLIGRAM, BID (2 IN 1 DAY)
     Dates: start: 202505, end: 202505
  6. ORENITRAM [Suspect]
     Active Substance: TREPROSTINIL
     Dosage: 0.125 MILLIGRAM, TID (3 IN 1 DAY)
     Dates: start: 202505, end: 20250524
  7. ORENITRAM [Suspect]
     Active Substance: TREPROSTINIL
  8. FLOMAX [Suspect]
     Active Substance: TAMSULOSIN HYDROCHLORIDE
     Indication: Product used for unknown indication
  9. TYVASO DPI [Suspect]
     Active Substance: TREPROSTINIL
     Indication: Pulmonary arterial hypertension
     Dosage: 16 MICROGRAM, QID (FOUR TIMES A DAY)
  10. TYVASO DPI [Suspect]
     Active Substance: TREPROSTINIL
  11. TYVASO DPI [Suspect]
     Active Substance: TREPROSTINIL
     Dosage: 16 MICROGRAM, QID (FOUR TIMES A DAY)
     Dates: start: 2025
  12. COLACE [Suspect]
     Active Substance: DOCUSATE SODIUM
     Indication: Product used for unknown indication
  13. OPSUMIT [Concomitant]
     Active Substance: MACITENTAN
     Indication: Product used for unknown indication
  14. OXYGEN [Concomitant]
     Active Substance: OXYGEN
     Indication: Product used for unknown indication

REACTIONS (12)
  - Carotid arteriosclerosis [Unknown]
  - Blood pressure abnormal [Unknown]
  - Frequent bowel movements [Unknown]
  - Gastrooesophageal reflux disease [Unknown]
  - Peripheral swelling [Unknown]
  - Feeling abnormal [Recovered/Resolved]
  - Blood pressure fluctuation [Recovered/Resolved]
  - Malaise [Recovered/Resolved]
  - Headache [Unknown]
  - Dizziness [Unknown]
  - Fatigue [Unknown]
  - Inappropriate schedule of product administration [Unknown]

NARRATIVE: CASE EVENT DATE: 20250101
